FAERS Safety Report 4894724-X (Version None)
Quarter: 2006Q1

REPORT INFORMATION
  Report Type: 
  Country: None (occurrence: None)
  Receive Date: 20060127
  Receipt Date: 20060127
  Transmission Date: 20060701
  Serious: Yes (Disabling)
  Sender: FDA-Public Use
  Company Number: None

PATIENT
  Age: 64 Year
  Sex: Male

DRUGS (16)
  1. DICLOFENAC 75 MG [Suspect]
     Indication: ARTHRITIS
     Dosage: 75 MG BID PO
     Route: 048
     Dates: start: 20011021, end: 20050907
  2. ASPIRIN [Suspect]
     Indication: HEADACHE
     Dosage: PRN PO
     Route: 048
  3. VENLAFAXINE HCL [Concomitant]
  4. TAMSULOSIN HCL [Concomitant]
  5. QUINNE SULFATE [Concomitant]
  6. PHYTONADIONE [Concomitant]
  7. OXYCODONE 5 MG/ACETAMINOPHEN [Concomitant]
  8. MORPHINE SO4 [Concomitant]
  9. MIRTAZAPINE [Concomitant]
  10. MECLIZINE HCL [Concomitant]
  11. LEVOTHYROXINE SODIUM [Concomitant]
  12. SYNTHROID [Concomitant]
  13. GEMFIBROZIL [Concomitant]
  14. DIAZEPAM [Concomitant]
  15. CYCLOBENZAPRINE HCL [Concomitant]
  16. ALBUTEROL SULFATE AUTOHALER [Concomitant]

REACTIONS (12)
  - ABDOMINAL PAIN [None]
  - ANAEMIA [None]
  - BACK PAIN [None]
  - DIZZINESS [None]
  - FAECAL VOLUME INCREASED [None]
  - FALL [None]
  - GASTRIC ULCER HAEMORRHAGE [None]
  - GASTROINTESTINAL HAEMORRHAGE [None]
  - HEADACHE [None]
  - ILEUS [None]
  - INADEQUATE ANALGESIA [None]
  - RECTAL HAEMORRHAGE [None]
